FAERS Safety Report 20135565 (Version 1)
Quarter: 2021Q4

REPORT INFORMATION
  Report Type: Spontaneous
  Country: US (occurrence: US)
  Receive Date: 20211201
  Receipt Date: 20211201
  Transmission Date: 20220304
  Serious: No
  Sender: FDA-Public Use
  Company Number: US-PFIZER INC-202101648984

PATIENT
  Age: 49 Year
  Sex: Female
  Weight: 119.75 kg

DRUGS (3)
  1. ZITHROMAX [Suspect]
     Active Substance: AZITHROMYCIN DIHYDRATE
     Indication: Antibiotic therapy
     Dosage: UNK
     Dates: start: 20211115, end: 20211119
  2. ZITHROMAX [Suspect]
     Active Substance: AZITHROMYCIN DIHYDRATE
     Dosage: UNK
  3. CYMBALTA [Concomitant]
     Active Substance: DULOXETINE HYDROCHLORIDE
     Indication: Depression
     Dosage: 120 MG, DAILY

REACTIONS (5)
  - Cough [Unknown]
  - Nasal congestion [Unknown]
  - Illness [Unknown]
  - Insomnia [Unknown]
  - Malaise [Unknown]
